FAERS Safety Report 22141090 (Version 1)
Quarter: 2023Q1

REPORT INFORMATION
  Report Type: Spontaneous
  Country: US (occurrence: None)
  Receive Date: 20230324
  Receipt Date: 20230324
  Transmission Date: 20230418
  Serious: No
  Sender: FDA-Public Use
  Company Number: None

PATIENT
  Age: 38 Year
  Sex: Male
  Weight: 90.72 kg

DRUGS (22)
  1. CAPECITABINE [Suspect]
     Active Substance: CAPECITABINE
     Indication: Colon cancer
     Dosage: FREQUENCY : TWICE A DAY;?
     Route: 048
  2. ABILIGY [Concomitant]
  3. ACETAMINOPHEN [Concomitant]
  4. BOOST ORAL [Concomitant]
  5. LIQUID [Concomitant]
  6. COLACE [Concomitant]
  7. MELATONIN [Concomitant]
  8. SENNA [Concomitant]
  9. ZINC [Concomitant]
  10. VITAMIN B12 [Concomitant]
  11. VITAMIN D3 [Concomitant]
  12. FERROUS GLUCONATE [Concomitant]
  13. LIDOCAINE [Concomitant]
  14. LIDOCAINE-PRILOCAINE [Concomitant]
  15. MILK OF MAGNESIA [Concomitant]
  16. MYLANTA [Concomitant]
  17. NORCO [Concomitant]
  18. OMEPRAZOLE [Concomitant]
  19. PROCHLORPERAZINE [Concomitant]
  20. PROZAC [Concomitant]
  21. IRON [Concomitant]
     Active Substance: IRON
  22. TUMS [Concomitant]

REACTIONS (1)
  - Disease progression [None]
